FAERS Safety Report 8609374-9 (Version None)
Quarter: 2012Q3

REPORT INFORMATION
  Report Type: 
  Country: None (occurrence: None)
  Receive Date: 20120821
  Receipt Date: 20120725
  Transmission Date: 20120928
  Serious: No
  Sender: FDA-Public Use
  Company Number: US-BAYER-2012-075705

PATIENT
  Age: 75 Year
  Sex: Female

DRUGS (1)
  1. NAPROXEN SODIUM [Suspect]

REACTIONS (1)
  - HYPERSENSITIVITY [None]
